FAERS Safety Report 8097447-1 (Version None)
Quarter: 2012Q1

REPORT INFORMATION
  Report Type: 
  Country: None (occurrence: None)
  Receive Date: 20120128
  Receipt Date: 20110711
  Transmission Date: 20120608
  Serious: No
  Sender: FDA-Public Use
  Company Number: US-ABBOTT-11P-163-0838120-00

PATIENT
  Sex: Male
  Weight: 131.66 kg

DRUGS (9)
  1. VITAMIN TAB [Concomitant]
     Indication: VITAMIN SUPPLEMENTATION
  2. PREDNISONE TAB [Concomitant]
     Indication: CROHN'S DISEASE
  3. CRESTOR [Concomitant]
     Indication: BLOOD CHOLESTEROL INCREASED
  4. PREVACID [Concomitant]
     Indication: GASTROOESOPHAGEAL REFLUX DISEASE
  5. LOMOTIL [Concomitant]
     Indication: CROHN'S DISEASE
  6. HUMIRA [Suspect]
     Indication: CROHN'S DISEASE
     Dates: start: 20101001, end: 20110601
  7. CIPROFLOXACIN [Concomitant]
     Indication: CROHN'S DISEASE
  8. PENTASA [Concomitant]
     Indication: CROHN'S DISEASE
  9. LEVSINEX [Concomitant]
     Indication: CROHN'S DISEASE

REACTIONS (5)
  - FATIGUE [None]
  - DYSPNOEA [None]
  - CROHN'S DISEASE [None]
  - HAEMATOCHEZIA [None]
  - SQUAMOUS CELL CARCINOMA OF SKIN [None]
